FAERS Safety Report 10880655 (Version 2)
Quarter: 2015Q4

REPORT INFORMATION
  Report Type: Report from Study
  Country: US (occurrence: US)
  Receive Date: 20150303
  Receipt Date: 20151209
  Transmission Date: 20160304
  Serious: Yes (Hospitalization)
  Sender: FDA-Public Use
  Company Number: US-ROCHE-1544526

PATIENT
  Age: 74 Year
  Sex: Female
  Weight: 77.18 kg

DRUGS (4)
  1. OSELTAMIVIR [Suspect]
     Active Substance: OSELTAMIVIR
     Indication: VOMITING
     Route: 065
  2. LISINOPRIL. [Concomitant]
     Active Substance: LISINOPRIL
  3. PREDNISOLONE. [Concomitant]
     Active Substance: PREDNISOLONE
  4. ADALIMUMAB [Suspect]
     Active Substance: ADALIMUMAB
     Indication: ANKYLOSING SPONDYLITIS
     Route: 065
     Dates: start: 201409, end: 20150101

REACTIONS (6)
  - Blood calcium decreased [Unknown]
  - Injection site pain [Unknown]
  - Delirium [Recovered/Resolved]
  - Vomiting [Recovered/Resolved]
  - Protein total decreased [Unknown]
  - Influenza [Recovered/Resolved]

NARRATIVE: CASE EVENT DATE: 201501
